FAERS Safety Report 25312696 (Version 1)
Quarter: 2025Q2

REPORT INFORMATION
  Report Type: Spontaneous
  Country: CN (occurrence: CN)
  Receive Date: 20250514
  Receipt Date: 20250514
  Transmission Date: 20250717
  Serious: Yes (Death, Hospitalization, Other)
  Sender: RANBAXY
  Company Number: CN-SUN PHARMACEUTICAL INDUSTRIES LTD-2025R1-498758

PATIENT
  Age: 19 Year
  Sex: Male
  Weight: 61.5 kg

DRUGS (8)
  1. AMPHOTERICIN B [Suspect]
     Active Substance: AMPHOTERICIN B
     Indication: Fusarium infection
     Dosage: 5 MILLIGRAM/KILOGRAM, QD
     Route: 065
  2. VORICONAZOLE [Suspect]
     Active Substance: VORICONAZOLE
     Indication: Immunosuppression
     Dosage: 200 MILLIGRAM, BID
     Route: 065
  3. VORICONAZOLE [Suspect]
     Active Substance: VORICONAZOLE
     Indication: Fusarium infection
     Dosage: 400 MILLIGRAM, BID
     Route: 065
  4. CASPOFUNGIN [Suspect]
     Active Substance: CASPOFUNGIN
     Indication: Fusarium infection
     Dosage: 50 MILLIGRAM, QD
     Route: 065
  5. ISAVUCONAZOLE [Suspect]
     Active Substance: ISAVUCONAZOLE
     Indication: Fusarium infection
     Dosage: 200 MILLIGRAM, BID
     Route: 065
  6. MICAFUNGIN [Suspect]
     Active Substance: MICAFUNGIN SODIUM
     Indication: Fusarium infection
     Dosage: 100 MILLIGRAM, QD
     Route: 065
  7. MICAFUNGIN [Suspect]
     Active Substance: MICAFUNGIN SODIUM
     Dosage: 300 MILLIGRAM, QD
     Route: 065
  8. AMPHOTERICIN B [Suspect]
     Active Substance: AMPHOTERICIN B
     Indication: Fusarium infection
     Route: 061

REACTIONS (1)
  - Multiple organ dysfunction syndrome [Fatal]
